FAERS Safety Report 17285594 (Version 12)
Quarter: 2023Q1

REPORT INFORMATION
  Report Type: Report from Study
  Country: IN (occurrence: IN)
  Receive Date: 20200117
  Receipt Date: 20230330
  Transmission Date: 20230417
  Serious: Yes (Death, Life-Threatening, Hospitalization)
  Sender: FDA-Public Use
  Company Number: NVSC2020IN006530

PATIENT
  Age: 72 Year
  Sex: Male
  Weight: 70.8 kg

DRUGS (18)
  1. PEMBROLIZUMAB [Suspect]
     Active Substance: PEMBROLIZUMAB
     Indication: Non-small cell lung cancer
     Dosage: 200 MG, Q3W
     Route: 042
     Dates: start: 20191209, end: 20200102
  2. PLACEBO [Suspect]
     Active Substance: UNSPECIFIED INGREDIENT
     Indication: Non-small cell lung cancer
     Dosage: UNK
     Route: 058
     Dates: start: 20191209, end: 20200102
  3. PEMETREXED DISODIUM [Suspect]
     Active Substance: PEMETREXED DISODIUM
     Indication: Non-small cell lung cancer
     Dosage: 920 MG, Q3W
     Route: 042
     Dates: start: 20191209, end: 20200102
  4. DUOLIN [Concomitant]
     Indication: Pyrexia
     Dosage: UNK
     Route: 065
     Dates: start: 20191230, end: 20191231
  5. BUDESONIDE\FORMOTEROL FUMARATE [Concomitant]
     Active Substance: BUDESONIDE\FORMOTEROL FUMARATE
     Indication: Supportive care
     Dosage: UNK
     Route: 065
     Dates: start: 20200215
  6. AMBROXOL [Concomitant]
     Active Substance: AMBROXOL
     Indication: Pyrexia
     Dosage: UNK
     Route: 065
     Dates: start: 20191230, end: 20191231
  7. AMBROXOL [Concomitant]
     Active Substance: AMBROXOL
     Indication: Mucosal inflammation
     Dosage: UNK
     Route: 065
     Dates: start: 20191216, end: 20200329
  8. AZITHROMYCIN [Concomitant]
     Active Substance: AZITHROMYCIN
     Indication: Pyrexia
     Dosage: UNK
     Route: 065
     Dates: start: 20191230, end: 20191231
  9. BUDESONIDE [Concomitant]
     Active Substance: BUDESONIDE
     Indication: Pyrexia
     Dosage: UNK
     Route: 065
     Dates: start: 20191230, end: 20191231
  10. OPTINEURON [Concomitant]
     Indication: Vitamin B12 deficiency
     Dosage: UNK
     Route: 065
     Dates: start: 20200309
  11. MIRTAZAPINE [Concomitant]
     Active Substance: MIRTAZAPINE
     Indication: Pyrexia
     Dosage: UNK
     Route: 065
     Dates: start: 20191231, end: 20191231
  12. POTKLOR [Concomitant]
     Indication: Hypokalaemia
     Dosage: UNK
     Route: 065
     Dates: start: 20200306
  13. PAN [Concomitant]
     Indication: Prophylaxis
     Dosage: UNK
     Route: 065
     Dates: start: 20200205
  14. OSELTAMIVIR [Concomitant]
     Active Substance: OSELTAMIVIR
     Indication: Pyrexia
     Dosage: UNK
     Route: 065
     Dates: start: 20191230, end: 20191231
  15. IVABRADINE [Concomitant]
     Active Substance: IVABRADINE
     Indication: Angina pectoris
     Dosage: UNK
     Route: 065
     Dates: start: 20200304
  16. PIPERACILLIN AND TAZOBACTAM [Concomitant]
     Active Substance: PIPERACILLIN SODIUM\TAZOBACTAM SODIUM
     Indication: Pyrexia
     Dosage: UNK
     Route: 065
     Dates: start: 20191230, end: 20191231
  17. ROMIPLOSTIM [Concomitant]
     Active Substance: ROMIPLOSTIM
     Indication: Prophylaxis
     Dosage: UNK
     Route: 065
     Dates: start: 20200214
  18. MUCOBENZ [Concomitant]
     Indication: Mucosal inflammation
     Dosage: UNK
     Route: 065
     Dates: start: 20191216

REACTIONS (2)
  - Febrile neutropenia [Fatal]
  - Nosocomial infection [Not Recovered/Not Resolved]

NARRATIVE: CASE EVENT DATE: 20200112
